FAERS Safety Report 8716523 (Version 3)
Quarter: 2012Q4

REPORT INFORMATION
  Report Type: 
  Country: AU (occurrence: AU)
  Receive Date: 20120810
  Receipt Date: 20121019
  Transmission Date: 20130627
  Serious: Yes (Hospitalization, Other)
  Sender: FDA-Public Use
  Company Number: AU-AMGEN-AUSSP2012049655

PATIENT
  Age: 56 Year
  Sex: Female
  Weight: 55 kg

DRUGS (4)
  1. XGEVA [Suspect]
     Indication: PROPHYLAXIS
     Dosage: 120 mg, qmo
     Route: 058
     Dates: start: 201201, end: 20120705
  2. XGEVA [Suspect]
     Indication: METASTASES TO BONE
  3. CAELYX [Suspect]
     Indication: BREAST CANCER METASTATIC
     Dosage: 50 mg, qmo
     Route: 042
     Dates: start: 20120705, end: 20120705
  4. TAXOTERE [Concomitant]
     Indication: BREAST CANCER METASTATIC
     Dosage: 100 mg, q3wk
     Route: 042
     Dates: start: 20120803

REACTIONS (5)
  - Convulsion [Recovered/Resolved]
  - Hypertension [Recovered/Resolved]
  - Posterior reversible encephalopathy syndrome [Recovered/Resolved]
  - Hypocalcaemia [Recovered/Resolved]
  - Headache [Unknown]
